FAERS Safety Report 17123920 (Version 3)
Quarter: 2020Q1

REPORT INFORMATION
  Report Type: Spontaneous
  Country: US (occurrence: US)
  Receive Date: 20191206
  Receipt Date: 20200122
  Transmission Date: 20200409
  Serious: Yes (Hospitalization)
  Sender: FDA-Public Use
  Company Number: US-ACTELION-A-NJ2019-198893

PATIENT
  Age: 91 Year
  Sex: Female
  Weight: 68.93 kg

DRUGS (3)
  1. XARELTO [Concomitant]
     Active Substance: RIVAROXABAN
  2. DILTIAZEM. [Concomitant]
     Active Substance: DILTIAZEM
  3. UPTRAVI [Suspect]
     Active Substance: SELEXIPAG
     Indication: PULMONARY ARTERIAL HYPERTENSION
     Dosage: 200 MCG, BID
     Route: 048

REACTIONS (4)
  - Fall [Unknown]
  - Soft tissue infection [Not Recovered/Not Resolved]
  - Rib fracture [Unknown]
  - Fluid retention [Unknown]

NARRATIVE: CASE EVENT DATE: 201911
